FAERS Safety Report 13518937 (Version 9)
Quarter: 2021Q1

REPORT INFORMATION
  Report Type: Spontaneous
  Country: US (occurrence: US)
  Receive Date: 20170505
  Receipt Date: 20210203
  Transmission Date: 20210419
  Serious: Yes (Hospitalization, Other)
  Sender: FDA-Public Use
  Company Number: US-SA-2017SA080268

PATIENT
  Age: 65 Year
  Sex: Female

DRUGS (2)
  1. AUBAGIO [Suspect]
     Active Substance: TERIFLUNOMIDE
     Indication: MULTIPLE SCLEROSIS
     Dosage: 14 MG,QD
     Route: 048
     Dates: start: 20161031
  2. AUBAGIO [Suspect]
     Active Substance: TERIFLUNOMIDE
     Dosage: 14 MG, QD
     Route: 048

REACTIONS (15)
  - Balance disorder [Not Recovered/Not Resolved]
  - Personality change [Recovered/Resolved]
  - Urinary tract infection [Unknown]
  - Depressed mood [Recovered/Resolved]
  - Multiple sclerosis relapse [Unknown]
  - Fall [Unknown]
  - Muscular weakness [Unknown]
  - Confusional state [Recovered/Resolved]
  - Neoplasm malignant [Not Recovered/Not Resolved]
  - Feeling cold [Unknown]
  - Pruritus [Unknown]
  - Product dose omission issue [Unknown]
  - Unevaluable event [Not Recovered/Not Resolved]
  - Inflammation [Not Recovered/Not Resolved]
  - Amnesia [Not Recovered/Not Resolved]

NARRATIVE: CASE EVENT DATE: 2020
